FAERS Safety Report 7765253-0 (Version None)
Quarter: 2011Q3

REPORT INFORMATION
  Report Type: 
  Country: None (occurrence: None)
  Receive Date: 20110921
  Receipt Date: 20110913
  Transmission Date: 20111222
  Serious: Yes (Hospitalization)
  Sender: FDA-Public Use
  Company Number: JP-GLAXOSMITHKLINE-B0742463A

PATIENT
  Sex: Male
  Weight: 82 kg

DRUGS (10)
  1. ARTANE [Concomitant]
     Route: 048
  2. VALPROATE SODIUM [Suspect]
     Dosage: 400MG PER DAY
     Route: 048
     Dates: start: 20110820, end: 20110823
  3. CLONAZEPAM [Concomitant]
     Dosage: 2MG PER DAY
     Route: 048
  4. VALPROATE SODIUM [Suspect]
     Indication: BIPOLAR I DISORDER
     Dosage: 1200MG PER DAY
     Route: 048
     Dates: start: 20050101, end: 20110805
  5. VALPROATE SODIUM [Suspect]
     Dosage: 800MG PER DAY
     Route: 048
     Dates: start: 20110806, end: 20110819
  6. ABILIFY [Concomitant]
     Dosage: 9MG PER DAY
     Route: 048
  7. LAMICTAL [Suspect]
     Dosage: 50MG PER DAY
     Route: 048
     Dates: start: 20110806, end: 20110819
  8. LAMICTAL [Suspect]
     Dosage: 100MG PER DAY
     Route: 048
     Dates: start: 20110820, end: 20110823
  9. DEPAS [Concomitant]
     Route: 048
  10. LAMICTAL [Suspect]
     Indication: BIPOLAR I DISORDER
     Dosage: 25MG ALTERNATE DAYS
     Route: 048
     Dates: start: 20110716, end: 20110805

REACTIONS (8)
  - RASH [None]
  - VIRAL INFECTION [None]
  - GENERALISED ERYTHEMA [None]
  - CIRCULATORY COLLAPSE [None]
  - DRUG RASH WITH EOSINOPHILIA AND SYSTEMIC SYMPTOMS [None]
  - PYREXIA [None]
  - DERMATITIS EXFOLIATIVE [None]
  - HEPATIC FUNCTION ABNORMAL [None]
